FAERS Safety Report 16411852 (Version 2)
Quarter: 2019Q3

REPORT INFORMATION
  Report Type: Other
  Country: US (occurrence: US)
  Receive Date: 20190610
  Receipt Date: 20190903
  Transmission Date: 20191004
  Serious: Yes (Hospitalization)
  Sender: FDA-Public Use
  Company Number: US-AMAG PHARMACEUTICALS, INC.-AMAG201901103

PATIENT
  Age: 30 Year
  Sex: Female

DRUGS (5)
  1. MAKENA [Suspect]
     Active Substance: HYDROXYPROGESTERONE CAPROATE
     Indication: PREMATURE DELIVERY
     Dosage: 250MG/ML, WEEKLY
     Route: 058
     Dates: start: 20190122, end: 20190304
  2. HYDROCODONE/ACETAMINOPHEN [Concomitant]
     Active Substance: ACETAMINOPHEN\HYDROCODONE
     Indication: PAIN
     Dosage: 5-325
     Route: 065
  3. PNV [Concomitant]
     Indication: PREGNANCY
     Route: 065
  4. PNV [Concomitant]
     Indication: ANAEMIA
  5. SYMBICORT [Concomitant]
     Active Substance: BUDESONIDE\FORMOTEROL FUMARATE DIHYDRATE
     Indication: ASTHMA
     Route: 065

REACTIONS (4)
  - Gestational diabetes [Not Recovered/Not Resolved]
  - Malaise [Unknown]
  - Inappropriate schedule of product administration [Unknown]
  - Uterine contractions during pregnancy [Recovered/Resolved]

NARRATIVE: CASE EVENT DATE: 20190122
